FAERS Safety Report 17282305 (Version 1)
Quarter: 2020Q1

REPORT INFORMATION
  Report Type: Spontaneous
  Country: US (occurrence: US)
  Receive Date: 20200116
  Receipt Date: 20200116
  Transmission Date: 20200409
  Serious: No
  Sender: FDA-Public Use
  Company Number: None

PATIENT
  Age: 39 Year
  Sex: Female
  Weight: 85.5 kg

DRUGS (9)
  1. CALCIUM [Concomitant]
     Active Substance: CALCIUM
  2. NAPROXEN 500 MG [Concomitant]
     Active Substance: NAPROXEN
  3. DULOXETINE 60 MG [Concomitant]
     Active Substance: DULOXETINE
  4. B 12 1000 MG [Concomitant]
  5. VITAMIN C [Concomitant]
     Active Substance: ASCORBIC ACID
  6. MAGNESIUM GLYCINATE [Concomitant]
     Active Substance: MAGNESIUM GLYCINATE
  7. MULTI ELDERBERRY [Concomitant]
  8. NADOLOL 20 MG [Concomitant]
     Active Substance: NADOLOL
  9. EMGALITY [Suspect]
     Active Substance: GALCANEZUMAB-GNLM
     Indication: MIGRAINE
     Dosage: ?          OTHER FREQUENCY:MONTHLY;?
     Route: 058
     Dates: start: 20190531, end: 20200116

REACTIONS (1)
  - Weight increased [None]
